FAERS Safety Report 9456219 (Version 1)
Quarter: 2013Q3

REPORT INFORMATION
  Report Type: Spontaneous
  Country: US (occurrence: None)
  Receive Date: 20130812
  Receipt Date: 20130812
  Transmission Date: 20140515
  Serious: Yes (Hospitalization)
  Sender: FDA-Public Use
  Company Number: None

PATIENT
  Age: 61 Year
  Sex: Male
  Weight: 126.1 kg

DRUGS (9)
  1. LISINOPRIL [Suspect]
     Indication: BLOOD PRESSURE
     Dosage: TAB 1 PILL MORNING
     Route: 048
     Dates: start: 200806, end: 20130623
  2. BAYER ASPRIN [Concomitant]
  3. TRAMADOL [Concomitant]
  4. LOSARTAN [Concomitant]
  5. METFORMIN [Concomitant]
  6. MELOXICAM [Concomitant]
  7. ATORVASTATIN [Concomitant]
  8. METOPROL TAR [Concomitant]
  9. GARBOPENTIN [Concomitant]

REACTIONS (4)
  - Pharyngeal oedema [None]
  - Swollen tongue [None]
  - Lip swelling [None]
  - Obstructive airways disorder [None]
